FAERS Safety Report 6946751 (Version 2)
Quarter: 2020Q3

REPORT INFORMATION
  Report Type: Report from Study
  Country: US (occurrence: US)
  Receive Date: 20090320
  Receipt Date: 20090326
  Transmission Date: 20201104
  Serious: Yes (Hospitalization)
  Sender: FDA-Public Use
  Company Number: US-ROCHE-620905

PATIENT
  Age: 53 Year
  Sex: Female

DRUGS (17)
  1. CIPRO [Suspect]
     Active Substance: CIPROFLOXACIN HYDROCHLORIDE
     Dosage: INTRAVENOUS NOT OTHERWISE SPECIFIED
     Route: 042
     Dates: start: 20081224, end: 20081228
  2. ALBUTEROL. [Concomitant]
     Active Substance: ALBUTEROL
     Indication: ASTHMA
     Dosage: RESPIRATORY INHALATION, AS REQUIRED
     Route: 055
  3. LABETALOL [Concomitant]
     Active Substance: LABETALOL\LABETALOL HYDROCHLORIDE
     Route: 048
  4. IBANDRONIC ACID. [Suspect]
     Active Substance: IBANDRONIC ACID
     Indication: PRODUCT USED FOR UNKNOWN INDICATION
     Route: 065
  5. REBIF [Suspect]
     Active Substance: INTERFERON BETA-1A
     Indication: MULTIPLE SCLEROSIS
     Route: 058
     Dates: start: 200507, end: 20081226
  6. ATIVAN [Concomitant]
     Active Substance: LORAZEPAM
     Dosage: AS REQUIRED
     Route: 048
  7. LISINOPRIL. [Concomitant]
     Active Substance: LISINOPRIL
     Route: 048
  8. VALTREX [Concomitant]
     Active Substance: VALACYCLOVIR HYDROCHLORIDE
     Route: 048
  9. ZOSYN [Suspect]
     Active Substance: PIPERACILLIN SODIUM\TAZOBACTAM SODIUM
     Dosage: ROUTE: INTRAVENOUS NOT OTHERWISE SPECIFIED
     Route: 042
     Dates: start: 20081222, end: 20081228
  10. PREDNISONE. [Concomitant]
     Active Substance: PREDNISONE
     Route: 048
  11. SILVADENE [Suspect]
     Active Substance: SILVER SULFADIAZINE
     Route: 065
     Dates: start: 2008
  12. VANCOMYCIN [Suspect]
     Active Substance: VANCOMYCIN
     Dosage: OTHER INDICATION INFECTION ON FOOT, INTRAVENOUS NOT OTHERWISE SPECIFIED.
     Route: 042
     Dates: start: 20081222, end: 20081228
  13. ASMANEX [Concomitant]
     Active Substance: MOMETASONE FUROATE
     Indication: ASTHMA
     Dosage: DRUG REPORTED ASMANEX TWISTHALER, RESPIRATORY (INHALATION)
     Route: 055
  14. ELAVIL [Concomitant]
     Active Substance: AMITRIPTYLINE HYDROCHLORIDE
     Dosage: TAKEN AT BEDTIME
     Route: 048
  15. TYLENOL [Concomitant]
     Active Substance: ACETAMINOPHEN
     Indication: PREMEDICATION
  16. FLONASE [Concomitant]
     Active Substance: FLUTICASONE PROPIONATE
     Dosage: ROUTE: NASAL, ONE SPRAY IN EACH NOSTRIL ONCE DAILY
     Route: 050
  17. VICODIN [Concomitant]
     Active Substance: ACETAMINOPHEN\HYDROCODONE BITARTRATE
     Route: 048

REACTIONS (12)
  - Focal segmental glomerulosclerosis [Unknown]
  - Sepsis [Recovered/Resolved]
  - Systemic lupus erythematosus [Unknown]
  - Multiple sclerosis [Unknown]
  - Synovial cyst [Recovered/Resolved]
  - Acute kidney injury [Recovered/Resolved]
  - Autoimmune hepatitis [Unknown]
  - Post procedural infection [Recovered/Resolved]
  - Hypertension [Unknown]
  - Hypergammaglobulinaemia benign monoclonal [Unknown]
  - Clostridial infection [Unknown]
  - Headache [Not Recovered/Not Resolved]

NARRATIVE: CASE EVENT DATE: 20081101
